FAERS Safety Report 10256046 (Version 1)
Quarter: 2014Q2

REPORT INFORMATION
  Report Type: Spontaneous
  Country: IT (occurrence: IT)
  Receive Date: 20140624
  Receipt Date: 20140624
  Transmission Date: 20141212
  Serious: Yes (Hospitalization)
  Sender: FDA-Public Use
  Company Number: IT-BRISTOL-MYERS SQUIBB COMPANY-21047691

PATIENT
  Age: 86 Year
  Sex: Male

DRUGS (6)
  1. COUMADIN TABS 5 MG [Suspect]
     Indication: ATRIAL FIBRILLATION
     Dosage: LAST DOSE:11MAY14
     Route: 048
     Dates: start: 20140101, end: 20140511
  2. VASORETIC [Concomitant]
     Dosage: 1DF: 20+12.5 MG, TABS
     Route: 048
  3. NORVASC [Concomitant]
     Dosage: TABS
     Route: 048
  4. EUTIROX [Concomitant]
     Dosage: TABS
     Route: 048
  5. PROSTIDE [Concomitant]
     Dosage: TABS
     Route: 048
  6. LANSOX [Concomitant]
     Dosage: CAPS
     Route: 048

REACTIONS (1)
  - Cystitis [Unknown]
